FAERS Safety Report 8067451-8 (Version None)
Quarter: 2012Q1

REPORT INFORMATION
  Report Type: 
  Country: None (occurrence: None)
  Receive Date: 20120124
  Receipt Date: 20120113
  Transmission Date: 20120608
  Serious: Yes (Other)
  Sender: FDA-Public Use
  Company Number: ZA-BAYER-2011-081813

PATIENT
  Age: 37 Year
  Sex: Male

DRUGS (10)
  1. SEROQUEL [Concomitant]
     Dosage: 300 MG, QD
  2. LYRICA [Concomitant]
     Dosage: 75 MG, BID
  3. ALCHERA [Concomitant]
     Dosage: 15 MG, QD
  4. SUBUTEX [Concomitant]
     Dosage: 8 MG, QD
     Dates: start: 20060130
  5. VALPROATE SODIUM [Concomitant]
     Dosage: 400 MG, BID
  6. VALPROIC ACID [Concomitant]
     Dosage: 400 MG, BID
  7. ADCO-METRONIDAZOLE [Concomitant]
     Dosage: 45 MG, QD
  8. BETASERON [Suspect]
     Indication: RELAPSING-REMITTING MULTIPLE SCLEROSIS
     Dosage: 8 MIU, QOD
     Route: 058
     Dates: start: 20060130, end: 20110901
  9. LAMICTAL [Concomitant]
     Dosage: 100 MG, QD
  10. MIRTAZAPINE [Concomitant]
     Dosage: 45 MG, QD

REACTIONS (8)
  - PAIN [None]
  - MYALGIA [None]
  - ARTHRALGIA [None]
  - LUPUS-LIKE SYNDROME [None]
  - SKIN MASS [None]
  - INJECTION SITE REACTION [None]
  - CHEST PAIN [None]
  - MULTIPLE SCLEROSIS [None]
